FAERS Safety Report 8969954 (Version 1)
Quarter: 2012Q4

REPORT INFORMATION
  Report Type: 
  Country: US (occurrence: US)
  Receive Date: 20121218
  Receipt Date: 20121218
  Transmission Date: 20130627
  Serious: No
  Sender: FDA-Public Use
  Company Number: US-TEVA-375773USA

PATIENT
  Sex: Female
  Weight: 74.91 kg

DRUGS (1)
  1. NUVIGIL [Suspect]
     Indication: NARCOLEPSY
     Dosage: QAM
     Route: 048
     Dates: start: 2012

REACTIONS (4)
  - Oral herpes [Recovering/Resolving]
  - Local swelling [Recovering/Resolving]
  - Localised infection [Recovering/Resolving]
  - Blister [Recovering/Resolving]
